FAERS Safety Report 4588714-4 (Version None)
Quarter: 2005Q1

REPORT INFORMATION
  Report Type: 
  Country: None (occurrence: None)
  Receive Date: 20050222
  Receipt Date: 20041213
  Transmission Date: 20050727
  Serious: Yes (Disabling)
  Sender: FDA-Public Use
  Company Number: US-MERCK-0412USA01579

PATIENT
  Age: 67 Year
  Sex: Female

DRUGS (9)
  1. FOSAMAX [Suspect]
     Indication: OSTEOPOROSIS
     Route: 048
     Dates: start: 20041106, end: 20041215
  2. PROTONIX [Concomitant]
     Route: 065
  3. PLAVIX [Concomitant]
     Route: 065
  4. ATENOLOL [Concomitant]
     Route: 065
  5. COZAAR [Concomitant]
     Route: 048
  6. LIPITOR [Concomitant]
     Route: 065
  7. ASPIRIN [Concomitant]
     Route: 065
  8. INDOCIN [Concomitant]
     Route: 065
  9. GARLIC EXTRACT [Concomitant]
     Route: 065

REACTIONS (3)
  - ARTHRALGIA [None]
  - OEDEMA PERIPHERAL [None]
  - PAIN IN EXTREMITY [None]
